FAERS Safety Report 7368925-5 (Version None)
Quarter: 2011Q1

REPORT INFORMATION
  Report Type: 
  Country: None (occurrence: None)
  Receive Date: 20110323
  Receipt Date: 20110315
  Transmission Date: 20110831
  Serious: Yes (Hospitalization)
  Sender: FDA-Public Use
  Company Number: US-ALEXION-A201100183

PATIENT
  Sex: Male

DRUGS (15)
  1. FOLIC ACID [Concomitant]
     Dosage: UNK
     Route: 048
  2. FRAGMIN [Concomitant]
  3. PHOS-NAK [Concomitant]
  4. CITRULLINE [Concomitant]
  5. MULTI-VITAMINS [Concomitant]
  6. PRILOSEC [Concomitant]
     Dosage: UNK
     Route: 048
  7. SOLIRIS [Suspect]
     Dosage: 900 MG, Q2W
     Route: 042
     Dates: start: 20100101
  8. TYLENOL (CAPLET) [Concomitant]
  9. DOXINATE                           /00061602/ [Concomitant]
  10. SOLIRIS [Suspect]
     Indication: PAROXYSMAL NOCTURNAL HAEMOGLOBINURIA
     Dosage: 600 MG, QWX4
     Route: 042
     Dates: start: 20100801, end: 20100101
  11. TRAMADOL HCL [Concomitant]
     Dosage: UNK
     Route: 048
  12. ZOLOFT [Concomitant]
  13. PHENERGAN HCL [Concomitant]
  14. REGLAN [Concomitant]
  15. XANAX [Concomitant]

REACTIONS (3)
  - SMALL INTESTINAL OBSTRUCTION [None]
  - BUDD-CHIARI SYNDROME [None]
  - ABDOMINAL PAIN [None]
